FAERS Safety Report 7797653-7 (Version None)
Quarter: 2011Q4

REPORT INFORMATION
  Report Type: 
  Country: None (occurrence: None)
  Receive Date: 20111005
  Receipt Date: 20110923
  Transmission Date: 20120403
  Serious: Yes (Death, Other)
  Sender: FDA-Public Use
  Company Number: US-ELI_LILLY_AND_COMPANY-US201101003588

PATIENT
  Age: 87 Year
  Sex: Male

DRUGS (3)
  1. COUMADIN [Concomitant]
  2. FORTEO [Suspect]
     Indication: OSTEOPOROSIS
     Dosage: 20 UG, QD
     Route: 065
     Dates: start: 20100101
  3. FORTEO [Suspect]
     Dosage: 20 UG, QD
     Dates: end: 20110730

REACTIONS (3)
  - HAEMORRHAGIC STROKE [None]
  - RIB FRACTURE [None]
  - FALL [None]
